FAERS Safety Report 18340510 (Version 2)
Quarter: 2020Q4

REPORT INFORMATION
  Report Type: Report from Study
  Country: US (occurrence: US)
  Receive Date: 20201002
  Receipt Date: 20201009
  Transmission Date: 20210113
  Serious: Yes (Hospitalization, Other)
  Sender: FDA-Public Use
  Company Number: US-BRISTOL-MYERS SQUIBB COMPANY-BMS-2020-079086

PATIENT
  Age: 73 Year
  Sex: Male
  Weight: 88.9 kg

DRUGS (1)
  1. APIXABAN [Suspect]
     Active Substance: APIXABAN
     Indication: CEREBROVASCULAR ACCIDENT PROPHYLAXIS
     Dosage: 5 MILLIGRAM, BID
     Route: 048
     Dates: start: 2011

REACTIONS (4)
  - Peripheral vein occlusion [Unknown]
  - Polycythaemia vera [Unknown]
  - Poor peripheral circulation [Unknown]
  - Renal failure [Unknown]

NARRATIVE: CASE EVENT DATE: 2016
